FAERS Safety Report 6855533-5 (Version None)
Quarter: 2010Q3

REPORT INFORMATION
  Report Type: 
  Country: None (occurrence: None)
  Receive Date: 20100719
  Receipt Date: 20100707
  Transmission Date: 20110219
  Serious: Yes (Hospitalization)
  Sender: FDA-Public Use
  Company Number: CA-JNJFOC-20100702604

PATIENT
  Sex: Male
  Weight: 60 kg

DRUGS (3)
  1. REMICADE [Suspect]
     Indication: CROHN'S DISEASE
     Route: 042
  2. REMICADE [Suspect]
     Route: 042
  3. METOPROLOL [Concomitant]

REACTIONS (4)
  - BASEDOW'S DISEASE [None]
  - BLOOD PRESSURE DECREASED [None]
  - MALAISE [None]
  - WEIGHT DECREASED [None]
